FAERS Safety Report 4438182-8 (Version None)
Quarter: 2004Q3

REPORT INFORMATION
  Report Type: 
  Country: None (occurrence: None)
  Receive Date: 20040831
  Receipt Date: 20040609
  Transmission Date: 20050211
  Serious: No
  Sender: FDA-Public Use
  Company Number: US-GLAXOSMITHKLINE-A0513978A

PATIENT
  Age: 54 Year
  Sex: Female

DRUGS (4)
  1. WELLBUTRIN XL [Suspect]
     Indication: ILL-DEFINED DISORDER
     Dosage: 300MG PER DAY
     Route: 048
  2. NO CONCURRENT MEDICATION [Concomitant]
  3. CLONAZEPAM [Concomitant]
     Route: 065
  4. ZESTRIL [Concomitant]
     Dosage: 10MG IN THE MORNING
     Route: 048

REACTIONS (3)
  - AMNESIA [None]
  - DRUG INEFFECTIVE [None]
  - VISION BLURRED [None]
